FAERS Safety Report 6567308-5 (Version None)
Quarter: 2010Q1

REPORT INFORMATION
  Report Type: 
  Country: None (occurrence: None)
  Receive Date: 20100202
  Receipt Date: 20100120
  Transmission Date: 20100710
  Serious: Yes (Hospitalization)
  Sender: FDA-Public Use
  Company Number: PHHY2009DE53892

PATIENT
  Sex: Male
  Weight: 100 kg

DRUGS (6)
  1. ALISKIREN ALI+ [Suspect]
     Indication: HYPERTENSION
     Dosage: 300 MG/DAY
     Route: 048
     Dates: start: 20081013, end: 20091001
  2. MOXONIDINE [Concomitant]
     Indication: HYPERTENSION
     Dosage: 0.4 MG/DAY
     Dates: start: 20071101
  3. MICARDIS HCT [Concomitant]
     Indication: HYPERTENSION
     Dosage: 1 DF/DAY
     Dates: start: 20071101
  4. AMLODIPINE [Concomitant]
     Indication: HYPERTENSION
     Dosage: 5 MG/DAY
     Dates: start: 20071101
  5. ENALAPRIL MALEATE [Concomitant]
     Indication: HYPERTENSION
     Dosage: 5 MG/DAY
     Dates: start: 20071101
  6. LOCOL [Concomitant]
     Indication: HYPERLIPIDAEMIA
     Dosage: 80 MG PER DAY
     Dates: start: 20081001

REACTIONS (5)
  - CHEMOTHERAPY [None]
  - COLON CANCER [None]
  - HEPATIC CANCER METASTATIC [None]
  - LUNG NEOPLASM MALIGNANT [None]
  - RESECTION OF RECTUM [None]
